FAERS Safety Report 16811230 (Version 3)
Quarter: 2019Q4

REPORT INFORMATION
  Report Type: Spontaneous
  Country: GB (occurrence: GB)
  Receive Date: 20190916
  Receipt Date: 20191111
  Transmission Date: 20200122
  Serious: Yes (Death, Other)
  Sender: FDA-Public Use
  Company Number: GB-OTSUKA-2019_032154

PATIENT
  Age: 43 Year
  Sex: Female
  Weight: 98 kg

DRUGS (2)
  1. ABILIFY [Suspect]
     Active Substance: ARIPIPRAZOLE
     Dosage: 9.75 MG, SINGLE
     Route: 030
     Dates: start: 20190710, end: 20190710
  2. ABILIFY [Suspect]
     Active Substance: ARIPIPRAZOLE
     Indication: PSYCHOTIC DISORDER
     Dosage: 7.5MG/ML SOLUTION FOR INJECTION
     Route: 030

REACTIONS (3)
  - Unresponsive to stimuli [Unknown]
  - Death [Fatal]
  - Product use in unapproved indication [Unknown]

NARRATIVE: CASE EVENT DATE: 20190710
